FAERS Safety Report 17303348 (Version 2)
Quarter: 2020Q1

REPORT INFORMATION
  Report Type: Spontaneous
  Country: US (occurrence: US)
  Receive Date: 20200122
  Receipt Date: 20200124
  Transmission Date: 20200409
  Serious: Yes (Other)
  Sender: FDA-Public Use
  Company Number: US-009507513-2001USA006202

PATIENT
  Sex: Male

DRUGS (2)
  1. LENVATINIB MESYLATE [Suspect]
     Active Substance: LENVATINIB MESYLATE
     Indication: RENAL CELL CARCINOMA
     Dosage: EVERY 2 WEEKS, 2 PILLS FOR A YEAR
     Route: 042
  2. OPDIVO [Suspect]
     Active Substance: NIVOLUMAB
     Indication: RENAL CELL CARCINOMA
     Dosage: EVERY 2 WEEKS
     Route: 041

REACTIONS (4)
  - Drug ineffective [Not Recovered/Not Resolved]
  - Embolism arterial [Unknown]
  - Hypertension [Unknown]
  - Malignant neoplasm progression [Not Recovered/Not Resolved]

NARRATIVE: CASE EVENT DATE: 2020
